FAERS Safety Report 20431989 (Version 2)
Quarter: 2022Q1

REPORT INFORMATION
  Report Type: Spontaneous
  Country: GB (occurrence: GB)
  Receive Date: 20220204
  Receipt Date: 20220329
  Transmission Date: 20220423
  Serious: Yes (Other)
  Sender: FDA-Public Use
  Company Number: GB-PFIZER INC-202200130776

PATIENT

DRUGS (1)
  1. BESPONSA [Suspect]
     Active Substance: INOTUZUMAB OZOGAMICIN

REACTIONS (5)
  - Graft versus host disease in skin [Unknown]
  - Neutropenic sepsis [Unknown]
  - Abdominal pain upper [Unknown]
  - Weight increased [Unknown]
  - Hypervolaemia [Unknown]
